FAERS Safety Report 24292764 (Version 1)
Quarter: 2024Q3

REPORT INFORMATION
  Report Type: Spontaneous
  Country: US (occurrence: None)
  Receive Date: 20240906
  Receipt Date: 20240906
  Transmission Date: 20241017
  Serious: No
  Sender: DOMPE FARMACEUTICI
  Company Number: US-FARMAPROD-202308-202310-3085

PATIENT
  Sex: Male

DRUGS (17)
  1. OXERVATE [Suspect]
     Active Substance: CENEGERMIN-BKBJ
     Indication: Neurotrophic keratopathy
     Route: 047
     Dates: start: 20231005
  2. VITAMINS [Concomitant]
     Active Substance: VITAMINS
  3. VIIBRYD [Concomitant]
     Active Substance: VILAZODONE HYDROCHLORIDE
     Dosage: 10 MG-20MG DOSE PACK
  4. BRILINTA [Concomitant]
     Active Substance: TICAGRELOR
  5. KEFLEX [Concomitant]
     Active Substance: CEPHALEXIN
  6. TRINTELLIX [Concomitant]
     Active Substance: VORTIOXETINE HYDROBROMIDE
  7. RANEXA [Concomitant]
     Active Substance: RANOLAZINE
     Dosage: 12 HOURS.
  8. TYLENOL ARTHRITIS PAIN [Concomitant]
     Active Substance: ACETAMINOPHEN
  9. ASPIRIN [Concomitant]
     Active Substance: ASPIRIN
  10. ZOCOR [Concomitant]
     Active Substance: SIMVASTATIN
  11. STOOL SOFTENER (DOCUSATE) [Concomitant]
     Active Substance: DOCUSATE
  12. VITAMINS [Concomitant]
     Active Substance: VITAMINS
     Dosage: 9 MG/15 ML LIQUID
  13. ZETIA [Concomitant]
     Active Substance: EZETIMIBE
  14. RESTASIS [Concomitant]
     Active Substance: CYCLOSPORINE
  15. VILAZODONE HYDROCHLORIDE [Concomitant]
     Active Substance: VILAZODONE HYDROCHLORIDE
  16. FUROSEMIDE [Concomitant]
     Active Substance: FUROSEMIDE
  17. NITROGLYCERIN [Concomitant]
     Active Substance: NITROGLYCERIN
     Dosage: I

REACTIONS (2)
  - Eye swelling [Unknown]
  - Ocular hyperaemia [Unknown]
